FAERS Safety Report 4662739-2 (Version None)
Quarter: 2005Q2

REPORT INFORMATION
  Report Type: 
  Country: None (occurrence: None)
  Receive Date: 20050516
  Receipt Date: 20050512
  Transmission Date: 20051028
  Serious: Yes (Life-Threatening)
  Sender: FDA-Public Use
  Company Number: FR-GLAXOSMITHKLINE-B0380731A

PATIENT
  Age: 60 Year
  Sex: Female

DRUGS (2)
  1. TICARPEN [Suspect]
     Indication: BACTERIAL INFECTION
     Dosage: 15G PER DAY
     Route: 042
     Dates: start: 20050411, end: 20050412
  2. NEBCIN [Concomitant]
     Route: 065
     Dates: start: 20050411

REACTIONS (9)
  - ANAPHYLACTIC SHOCK [None]
  - HEART RATE INCREASED [None]
  - HYPOTENSION [None]
  - LOSS OF CONSCIOUSNESS [None]
  - OXYGEN SATURATION DECREASED [None]
  - PRURITUS GENERALISED [None]
  - PULSE ABNORMAL [None]
  - RASH [None]
  - RESPIRATORY DISORDER [None]
